FAERS Safety Report 6432086-7 (Version None)
Quarter: 2009Q4

REPORT INFORMATION
  Report Type: 
  Country: None (occurrence: None)
  Receive Date: 20091109
  Receipt Date: 20091029
  Transmission Date: 20100525
  Serious: Yes (Hospitalization)
  Sender: FDA-Public Use
  Company Number: IT-ROCHE-665962

PATIENT
  Sex: Female

DRUGS (7)
  1. VESANOID [Suspect]
     Route: 065
     Dates: start: 20090924, end: 20090930
  2. ARSENIC TRIOXIDE [Suspect]
     Dosage: FREQUENCY: DAILY.
     Route: 042
  3. TEICOPLANIN [Concomitant]
  4. MEROPENEM [Concomitant]
  5. LANSOPRAZOLE [Concomitant]
  6. METRONIDAZOLE [Concomitant]
  7. FLUCONAZOLE [Concomitant]

REACTIONS (6)
  - GENERALISED OEDEMA [None]
  - HYPOTENSION [None]
  - ILEUS PARALYTIC [None]
  - OLIGURIA [None]
  - PLEURAL EFFUSION [None]
  - PYREXIA [None]
